FAERS Safety Report 8807818 (Version 3)
Quarter: 2012Q4

REPORT INFORMATION
  Report Type: Report from Study
  Country: GB (occurrence: GB)
  Receive Date: 20120925
  Receipt Date: 20121009
  Transmission Date: 20130627
  Serious: Yes (Hospitalization)
  Sender: FDA-Public Use
  Company Number: GB-GLAXOSMITHKLINE-B0832108A

PATIENT
  Age: 86 Year
  Sex: Male
  Weight: 73 kg

DRUGS (3)
  1. OFATUMUMAB [Suspect]
     Indication: CHRONIC LYMPHOCYTIC LEUKAEMIA
     Route: 042
     Dates: start: 20120910
  2. CHLORPHENIRAMINE [Concomitant]
  3. PREDNISOLONE [Concomitant]

REACTIONS (1)
  - Infusion related reaction [Recovered/Resolved]
